FAERS Safety Report 8294953-1 (Version None)
Quarter: 2012Q2

REPORT INFORMATION
  Report Type: 
  Country: None (occurrence: None)
  Receive Date: 20120418
  Receipt Date: 20120411
  Transmission Date: 20120825
  Serious: Yes (Other)
  Sender: FDA-Public Use
  Company Number: US-JNJFOC-20120405298

PATIENT
  Sex: Female
  Weight: 81.65 kg

DRUGS (1)
  1. ORTHO EVRA [Suspect]
     Indication: CONTRACEPTION
     Route: 062
     Dates: start: 20110101

REACTIONS (7)
  - MENSTRUATION DELAYED [None]
  - OEDEMA PERIPHERAL [None]
  - PRODUCT ADHESION ISSUE [None]
  - APPLICATION SITE DISCOLOURATION [None]
  - HEADACHE [None]
  - INTENTIONAL DRUG MISUSE [None]
  - WEIGHT INCREASED [None]
